FAERS Safety Report 10012446 (Version 4)
Quarter: 2014Q2

REPORT INFORMATION
  Report Type: Report from Study
  Country: US (occurrence: US)
  Receive Date: 20140314
  Receipt Date: 20140425
  Transmission Date: 20141212
  Serious: Yes (Death, Life-Threatening, Hospitalization)
  Sender: FDA-Public Use
  Company Number: US-ACTELION-A-US2014-93971

PATIENT
  Age: 54 Year
  Sex: Female

DRUGS (4)
  1. VENTAVIS [Suspect]
     Indication: PULMONARY ARTERIAL HYPERTENSION
     Dosage: 5 MCG, Q4HRS
     Route: 055
     Dates: start: 20081223, end: 20140306
  2. OPSUMIT [Suspect]
     Indication: PULMONARY ARTERIAL HYPERTENSION
     Dosage: 10 MG, UNK
     Route: 048
     Dates: start: 20131219
  3. ADCIRCA [Concomitant]
  4. COUMADIN [Concomitant]

REACTIONS (7)
  - Renal failure chronic [Fatal]
  - Concomitant disease aggravated [Fatal]
  - Haemodialysis [Unknown]
  - Fluid overload [Recovering/Resolving]
  - Rash [Not Recovered/Not Resolved]
  - Pain of skin [Not Recovered/Not Resolved]
  - Vaginal disorder [Not Recovered/Not Resolved]
